FAERS Safety Report 16405791 (Version 4)
Quarter: 2019Q4

REPORT INFORMATION
  Report Type: Spontaneous
  Country: VN (occurrence: VN)
  Receive Date: 20190607
  Receipt Date: 20191030
  Transmission Date: 20200122
  Serious: Yes (Hospitalization, Other)
  Sender: FDA-Public Use
  Company Number: PHHY2019VN125956

PATIENT
  Age: 10 Year
  Sex: Male
  Weight: 18.5 kg

DRUGS (7)
  1. PENICILLIN V [Concomitant]
     Active Substance: PENICILLIN V
     Indication: SPLEEN OPERATION
     Dosage: UNK, QD
     Route: 048
  2. DEFEROXAMINE [Suspect]
     Active Substance: DEFEROXAMINE MESYLATE
     Dosage: 30 MG/KG, QD
     Route: 065
  3. DEFEROXAMINE [Suspect]
     Active Substance: DEFEROXAMINE MESYLATE
     Indication: IRON OVERLOAD
     Dosage: (NON-ROUTINE) EVERY 4-5 MONTHS
     Route: 065
  4. FOLIC ACID. [Concomitant]
     Active Substance: FOLIC ACID
     Dosage: 5 MG, QD
     Route: 065
  5. VITAMIN E [Concomitant]
     Active Substance: .ALPHA.-TOCOPHEROL
     Dosage: 400 IU, QD
     Route: 065
  6. FOLIC ACID. [Concomitant]
     Active Substance: FOLIC ACID
     Indication: SPLEEN OPERATION
     Dosage: 1 DF, QD
     Route: 065
  7. VITAMIN E [Concomitant]
     Active Substance: .ALPHA.-TOCOPHEROL
     Indication: SPLEEN OPERATION
     Dosage: 1 DF, QD
     Route: 065

REACTIONS (8)
  - Otitis media [Unknown]
  - Hyperphagia [Unknown]
  - Polydipsia [Unknown]
  - Diabetes mellitus [Not Recovered/Not Resolved]
  - Polyuria [Unknown]
  - Hepatomegaly [Unknown]
  - Weight decreased [Unknown]
  - Otorrhoea [Unknown]
